FAERS Safety Report 9495643 (Version 1)
Quarter: 2013Q3

REPORT INFORMATION
  Report Type: Spontaneous
  Country: US (occurrence: US)
  Receive Date: 20130903
  Receipt Date: 20130903
  Transmission Date: 20140515
  Serious: No
  Sender: FDA-Public Use
  Company Number: US-TEVA-429515USA

PATIENT
  Age: 23 Year
  Sex: Female
  Weight: 62.2 kg

DRUGS (3)
  1. PARAGARD 380A [Suspect]
     Indication: CONTRACEPTION
     Dates: start: 20130409, end: 20130806
  2. FISH OIL [Concomitant]
  3. TOCOPHEROL [Concomitant]

REACTIONS (1)
  - Device expulsion [Recovered/Resolved]
